FAERS Safety Report 10048159 (Version 1)
Quarter: 2014Q1

REPORT INFORMATION
  Report Type: Spontaneous
  Country: US (occurrence: None)
  Receive Date: 20140306
  Receipt Date: 20140306
  Transmission Date: 20141002
  Serious: Yes (Hospitalization)
  Sender: FDA-Public Use
  Company Number: 163-21880-13094492

PATIENT
  Age: 54 Year
  Sex: Male

DRUGS (7)
  1. REVLIMID (LENALIDOMIDE) (15 MILLIGRAM, CAPSULES) [Suspect]
     Indication: PLASMA CELL MYELOMA
     Dosage: 21 IN 28 D
     Route: 048
     Dates: start: 20130716
  2. LISINOPRIL (LISINOPRIL) [Concomitant]
  3. AMLODIPINE (AMLODIPINE) [Concomitant]
  4. POTASSIUM (POTASSIUM) [Concomitant]
  5. COREG (CARVEDILOL) [Concomitant]
  6. LASIX (FUROSEMIDE) [Concomitant]
  7. WARFARIN (WARFARIN) [Concomitant]

REACTIONS (2)
  - Pneumonia [None]
  - Full blood count decreased [None]
